FAERS Safety Report 20775659 (Version 1)
Quarter: 2022Q2

REPORT INFORMATION
  Report Type: Spontaneous
  Country: GB (occurrence: GB)
  Receive Date: 20220502
  Receipt Date: 20220502
  Transmission Date: 20220721
  Serious: Yes (Death, Other)
  Sender: FDA-Public Use
  Company Number: None

PATIENT
  Age: 81 Year
  Sex: Male

DRUGS (6)
  1. BISOPROLOL FUMARATE [Suspect]
     Active Substance: BISOPROLOL FUMARATE
     Dosage: UNIT DOSE : 10 MG,  BISOPROLOL 10MG
     Route: 065
  2. VALSARTAN [Suspect]
     Active Substance: VALSARTAN
     Route: 065
  3. TAMSULOSIN [Suspect]
     Active Substance: TAMSULOSIN
     Route: 065
  4. EPLERENONE [Suspect]
     Active Substance: EPLERENONE
     Dosage: UNIT DOSE : 25 MG, EPLERENONE 25MG
     Route: 065
  5. SACUBITRIL [Suspect]
     Active Substance: SACUBITRIL
     Route: 065
  6. FUROSEMIDE [Suspect]
     Active Substance: FUROSEMIDE
     Dosage: UNIT DOSE : 40 MG, FRUSEMIDE 40MG
     Route: 065

REACTIONS (5)
  - Acute kidney injury [Fatal]
  - Bladder cancer [Not Recovered/Not Resolved]
  - Hypotension [Not Recovered/Not Resolved]
  - International normalised ratio abnormal [Not Recovered/Not Resolved]
  - Contraindicated product administered [Unknown]

NARRATIVE: CASE EVENT DATE: 20220116
